FAERS Safety Report 19257580 (Version 1)
Quarter: 2021Q2

REPORT INFORMATION
  Report Type: Spontaneous
  Country: US (occurrence: US)
  Receive Date: 20210513
  Receipt Date: 20210513
  Transmission Date: 20210717
  Serious: Yes (Death)
  Sender: FDA-Public Use
  Company Number: None

PATIENT
  Age: 84 Year
  Sex: Female

DRUGS (6)
  1. BOSULIF [Suspect]
     Active Substance: BOSUTINIB MONOHYDRATE
     Route: 048
  2. ASPIR?LOW [Concomitant]
     Active Substance: ASPIRIN
  3. DONEPEZIL HCL [Concomitant]
     Active Substance: DONEPEZIL HYDROCHLORIDE
  4. NIFEDIPINE. [Concomitant]
     Active Substance: NIFEDIPINE
  5. HEPARIN (PORCINE) IN NACL [Concomitant]
  6. ZETIA [Concomitant]
     Active Substance: EZETIMIBE

REACTIONS (1)
  - Death [None]

NARRATIVE: CASE EVENT DATE: 20210512
